FAERS Safety Report 14474593 (Version 1)
Quarter: 2018Q1

REPORT INFORMATION
  Report Type: Spontaneous
  Country: GB (occurrence: GB)
  Receive Date: 20180201
  Receipt Date: 20180201
  Transmission Date: 20180509
  Serious: Yes (Hospitalization)
  Sender: FDA-Public Use
  Company Number: GB-JNJFOC-20180137694

PATIENT
  Sex: Male

DRUGS (18)
  1. ASPIRIN. [Concomitant]
     Active Substance: ASPIRIN
     Route: 065
  2. CASSIA ANGUSTIFOLIA [Concomitant]
     Active Substance: SENNA LEAF
     Route: 065
  3. DOCUSATE [Concomitant]
     Active Substance: DOCUSATE
     Route: 065
  4. DILTIAZEM. [Concomitant]
     Active Substance: DILTIAZEM
     Route: 065
  5. LINEZOLID. [Concomitant]
     Active Substance: LINEZOLID
     Route: 065
  6. NICORETTE [Concomitant]
     Active Substance: NICOTINE
     Route: 065
  7. GABAPENTIN. [Concomitant]
     Active Substance: GABAPENTIN
     Route: 065
  8. BISOPROLOL [Concomitant]
     Active Substance: BISOPROLOL
     Route: 065
  9. XARELTO [Suspect]
     Active Substance: RIVAROXABAN
     Indication: ATRIAL FIBRILLATION
     Route: 048
  10. CHLORAMPHENICOL [Concomitant]
     Active Substance: CHLORAMPHENICOL
     Route: 065
  11. PABRINEX HIGH POTENCY [Concomitant]
     Route: 065
  12. FOLIC ACID. [Concomitant]
     Active Substance: FOLIC ACID
     Route: 065
  13. TINZAPARIN [Concomitant]
     Active Substance: TINZAPARIN
     Route: 065
  14. COTRIMOXAZOLE [Concomitant]
     Active Substance: SULFAMETHOXAZOLE\TRIMETHOPRIM
     Route: 065
  15. CHLORDIAZEPOXIDE HYDROCHLORIDE. [Concomitant]
     Active Substance: CHLORDIAZEPOXIDE HYDROCHLORIDE
     Route: 065
  16. ATORVASTATIN [Concomitant]
     Active Substance: ATORVASTATIN
     Route: 065
  17. TRIMETHOPRIM. [Concomitant]
     Active Substance: TRIMETHOPRIM
     Route: 065
  18. PARACETAMOL [Concomitant]
     Active Substance: ACETAMINOPHEN
     Route: 065

REACTIONS (1)
  - Atrial thrombosis [Recovered/Resolved]
